FAERS Safety Report 6248088-X (Version None)
Quarter: 2009Q2

REPORT INFORMATION
  Report Type: 
  Country: None (occurrence: None)
  Receive Date: 20090629
  Receipt Date: 20070525
  Transmission Date: 20091009
  Serious: Yes (Hospitalization, Other)
  Sender: FDA-Public Use
  Company Number: US-ASTRAZENECA-2006UW25096

PATIENT
  Age: 18097 Day
  Sex: Male
  Weight: 79.4 kg

DRUGS (10)
  1. SEROQUEL [Suspect]
     Indication: SLEEP DISORDER
     Route: 048
     Dates: start: 20020101, end: 20050101
  2. SEROQUEL [Suspect]
     Indication: DEPRESSION
     Route: 048
     Dates: start: 20020101, end: 20050101
  3. SEROQUEL [Suspect]
     Dosage: 200MG - 400MG
     Route: 048
     Dates: start: 20030509
  4. SEROQUEL [Suspect]
     Dosage: 200MG - 400MG
     Route: 048
     Dates: start: 20030509
  5. FELODIPINE [Concomitant]
     Route: 048
     Dates: start: 20051001
  6. IRBESARTAN [Concomitant]
     Route: 048
     Dates: start: 20050929
  7. NORVASC [Concomitant]
     Route: 048
     Dates: start: 20051006
  8. ZETIA [Concomitant]
     Route: 048
     Dates: start: 20060918
  9. TRAZODONE HCL [Concomitant]
     Dosage: 150 MG, TWO AT NIGHT
     Route: 048
  10. VIAGRA [Concomitant]
     Route: 048
     Dates: start: 20020307

REACTIONS (4)
  - DIABETES MELLITUS [None]
  - DIABETES MELLITUS INADEQUATE CONTROL [None]
  - DIABETIC NEUROPATHY [None]
  - TYPE 1 DIABETES MELLITUS [None]
